FAERS Safety Report 14283785 (Version 2)
Quarter: 2018Q1

REPORT INFORMATION
  Report Type: Spontaneous
  Country: CH (occurrence: CH)
  Receive Date: 20171213
  Receipt Date: 20180116
  Transmission Date: 20180509
  Serious: Yes (Other)
  Sender: FDA-Public Use
  Company Number: CH-BAXTER-2017BAX041619

PATIENT

DRUGS (1)
  1. ENDOXAN 1 G [Suspect]
     Active Substance: CYCLOPHOSPHAMIDE
     Indication: GRANULOMATOSIS WITH POLYANGIITIS
     Dosage: 5 ENDOXAN STIMULI
     Route: 065

REACTIONS (6)
  - Antineutrophil cytoplasmic antibody positive [Unknown]
  - Hypoacusis [Unknown]
  - Disease progression [Unknown]
  - Granulomatosis with polyangiitis [Unknown]
  - Lung infection [Unknown]
  - Therapy non-responder [Unknown]
